FAERS Safety Report 4283516-0 (Version None)
Quarter: 2004Q1

REPORT INFORMATION
  Report Type: 
  Country: None (occurrence: None)
  Receive Date: 20040202
  Receipt Date: 20040109
  Transmission Date: 20041129
  Serious: Yes (Other)
  Sender: FDA-Public Use
  Company Number: CA-BRISTOL-MYERS SQUIBB COMPANY-12474987

PATIENT
  Age: 72 Year
  Sex: Female
  Weight: 73 kg

DRUGS (7)
  1. TEQUIN [Suspect]
     Indication: BRONCHITIS
     Dosage: 1 DOSE ONLY
     Route: 048
     Dates: start: 20031020, end: 20031020
  2. METFORMIN HCL [Suspect]
     Route: 048
     Dates: end: 20031215
  3. GLYBURIDE [Suspect]
     Dosage: INTERRUPTED 21-OCT-2003, RESTARTED 22-OCT-2003
     Route: 048
     Dates: end: 20031215
  4. RAMIPRIL [Concomitant]
     Route: 048
  5. SYNTHROID [Concomitant]
     Route: 048
  6. TEMAZEPAM [Concomitant]
     Route: 048
  7. LECTOPAM TAB [Concomitant]
     Route: 048

REACTIONS (2)
  - BLOOD THYROID STIMULATING HORMONE DECREASED [None]
  - HYPOGLYCAEMIA [None]
